FAERS Safety Report 6647916-3 (Version None)
Quarter: 2010Q1

REPORT INFORMATION
  Report Type: 
  Country: None (occurrence: None)
  Receive Date: 20100318
  Receipt Date: 20100302
  Transmission Date: 20100710
  Serious: Yes (Disabling)
  Sender: FDA-Public Use
  Company Number: APP201000121

PATIENT
  Age: 67 Year
  Sex: Female

DRUGS (8)
  1. DOXORUBICIN HYDROCHLORIDE INJECTION [Suspect]
     Indication: MULTIPLE MYELOMA
  2. BORTEZOMIB [Suspect]
     Indication: MULTIPLE MYELOMA
  3. ITRACONOZOLE (ITRACONAZOLE) [Concomitant]
  4. BACTRIM [Concomitant]
  5. VALACYCLOVIR [Concomitant]
  6. EPOIETIN [Concomitant]
  7. LANSOPRAZOLE [Concomitant]
  8. DEXAMETHASONE SODIUM PHOSPHATE [Concomitant]

REACTIONS (5)
  - BLINDNESS CORTICAL [None]
  - GRAND MAL CONVULSION [None]
  - LOSS OF CONSCIOUSNESS [None]
  - QUADRIPARESIS [None]
  - REVERSIBLE POSTERIOR LEUKOENCEPHALOPATHY SYNDROME [None]
